FAERS Safety Report 9785777 (Version 2)
Quarter: 2014Q2

REPORT INFORMATION
  Report Type: Spontaneous
  Country: JP (occurrence: None)
  Receive Date: 20131223
  Receipt Date: 20140514
  Transmission Date: 20141212
  Serious: Yes (Hospitalization)
  Sender: FDA-Public Use
  Company Number: SYM-2013-14224

PATIENT
  Age: 67 Year
  Sex: Male
  Weight: 64 kg

DRUGS (12)
  1. FLUOROURACIL (FLUOROURACIL) (INJECTION) (FLUOROURACIL) [Suspect]
     Indication: COLON CANCER
     Route: 040
     Dates: start: 20110915, end: 20110915
  2. ELPLAT [Suspect]
     Indication: COLON CANCER
     Route: 041
     Dates: start: 20091204, end: 20091204
  3. AVASTIN (BEVACIZUMAB) (INJECTION) (BEVACIZUMAB) [Suspect]
     Indication: COLON CANCER
     Route: 041
     Dates: start: 20091204, end: 20091204
  4. CALCIUM LEVOFOLINATE [Suspect]
     Indication: COLON CANCER
     Route: 041
     Dates: start: 201108
  5. CALCIUM LEVOFOLINATE [Concomitant]
  6. XELODA (CAPECITABINE) [Concomitant]
  7. DEXART (DEXAMETHASONE SODIUM PHOSPHATE) [Concomitant]
  8. POLARAMINE (DEXCHLORPHENIRAMINE MALEATE) [Concomitant]
  9. PYDOXAL (PYRIDOXAL PHOSPHATE) [Concomitant]
  10. NEUTROGIN (LENOGRASTIM) [Concomitant]
  11. KYTRIL (GRANISETRON HYDROCHLORIDE) [Concomitant]
  12. GAMOFA (FAMOTIDINE) [Concomitant]

REACTIONS (7)
  - Activities of daily living impaired [None]
  - Pancytopenia [None]
  - Splenomegaly [None]
  - Varices oesophageal [None]
  - Neuropathy peripheral [None]
  - Prostatitis [None]
  - Portal hypertension [None]
